FAERS Safety Report 9015680 (Version 1)
Quarter: 2013Q1

REPORT INFORMATION
  Report Type: Spontaneous
  Country: FR (occurrence: FR)
  Receive Date: 20130116
  Receipt Date: 20130116
  Transmission Date: 20140127
  Serious: Yes (Other)
  Sender: FDA-Public Use
  Company Number: FR-ROCHE-1078030

PATIENT
  Age: 77 Year
  Sex: Male

DRUGS (7)
  1. ROCEPHINE [Suspect]
     Indication: INTERVERTEBRAL DISCITIS
     Route: 042
     Dates: start: 20120417, end: 20120531
  2. TAVANIC [Suspect]
     Indication: INTERVERTEBRAL DISCITIS
     Route: 048
     Dates: start: 20120418, end: 20120531
  3. PRITOR [Concomitant]
     Dosage: PRITOR 40
     Route: 065
  4. VOLTARENE (FRANCE) [Concomitant]
     Dosage: VOLTARENE 75 LP; ONE MORNING AND ONE EVENING
     Route: 065
  5. DOLIPRANE [Concomitant]
     Dosage: DOLIPRANE 1000
     Route: 065
  6. OMEPRAZOLE [Concomitant]
     Dosage: OMEPRAZOLE 20 IN THE EVENING
     Route: 065
  7. AZACTAM [Concomitant]
     Route: 065
     Dates: start: 20120531

REACTIONS (3)
  - Leukopenia [Recovered/Resolved]
  - Lymphopenia [Recovered/Resolved]
  - Agranulocytosis [Recovered/Resolved]
